FAERS Safety Report 24210759 (Version 2)
Quarter: 2024Q3

REPORT INFORMATION
  Report Type: Spontaneous
  Country: US (occurrence: US)
  Receive Date: 20240814
  Receipt Date: 20240820
  Transmission Date: 20241017
  Serious: No
  Sender: ABBVIE
  Company Number: US-ABBVIE-5876545

PATIENT
  Sex: Female

DRUGS (1)
  1. CARAFATE [Suspect]
     Active Substance: SUCRALFATE
     Indication: Dyspepsia
     Dosage: TIME INTERVAL: AS NECESSARY: 10ML (TBD). ONE TO TWO TEASPOONS
     Route: 065

REACTIONS (2)
  - Off label use [Unknown]
  - Off label use [Unknown]
